FAERS Safety Report 19038574 (Version 1)
Quarter: 2021Q1

REPORT INFORMATION
  Report Type: Spontaneous
  Country: US (occurrence: US)
  Receive Date: 20210322
  Receipt Date: 20210322
  Transmission Date: 20210420
  Serious: Yes (Life-Threatening, Hospitalization)
  Sender: FDA-Public Use
  Company Number: US-MYLANLABS-2021M1015862

PATIENT
  Age: 61 Year
  Sex: Female

DRUGS (1)
  1. PARACETAMOL [Suspect]
     Active Substance: ACETAMINOPHEN
     Indication: PRODUCT USED FOR UNKNOWN INDICATION
     Dosage: FORMULATION: LIQUID; A CONCENTRATION OF PROPYLENE GLYCOL IN ??.
     Route: 040

REACTIONS (5)
  - Lactic acidosis [Recovering/Resolving]
  - Incorrect route of product administration [Recovering/Resolving]
  - Myocardial depression [Recovering/Resolving]
  - Shock [Recovering/Resolving]
  - Accidental exposure to product [Recovering/Resolving]
